FAERS Safety Report 6997746-8 (Version None)
Quarter: 2010Q3

REPORT INFORMATION
  Report Type: 
  Country: None (occurrence: None)
  Receive Date: 20100919
  Receipt Date: 20100910
  Transmission Date: 20110219
  Serious: Yes (Hospitalization)
  Sender: FDA-Public Use
  Company Number: PHHO2010KR13720

PATIENT
  Sex: Male
  Weight: 77.8 kg

DRUGS (4)
  1. ERL 080A ERL+TAB [Suspect]
     Indication: RENAL TRANSPLANT
     Dosage: 720 MG, BID
     Route: 048
     Dates: start: 20100812, end: 20100822
  2. ERL 080A ERL+TAB [Suspect]
     Dosage: 360 MG, BID
     Route: 048
     Dates: start: 20100823
  3. NEORAL [Suspect]
     Indication: RENAL TRANSPLANT
     Dosage: 400 UNK, QD
     Route: 048
     Dates: start: 20100801, end: 20100809
  4. NEORAL [Suspect]
     Dosage: 400 MG, QD
     Route: 048
     Dates: start: 20100810, end: 20100901

REACTIONS (5)
  - CONCOMITANT DISEASE PROGRESSION [None]
  - CORYNEBACTERIUM INFECTION [None]
  - KIDNEY TRANSPLANT REJECTION [None]
  - PERITONITIS BACTERIAL [None]
  - URINE OUTPUT DECREASED [None]
